FAERS Safety Report 10872264 (Version 1)
Quarter: 2015Q1

REPORT INFORMATION
  Report Type: Spontaneous
  Country: JP (occurrence: JP)
  Receive Date: 20150226
  Receipt Date: 20150226
  Transmission Date: 20150721
  Serious: Yes (Hospitalization, Other)
  Sender: FDA-Public Use
  Company Number: JP-LUNDBECK-DKLU1108318

PATIENT
  Age: 36 Year
  Sex: Male

DRUGS (5)
  1. MYSTAN [Suspect]
     Active Substance: CLOBAZAM
     Route: 048
  2. MYSTAN [Suspect]
     Active Substance: CLOBAZAM
     Indication: FRONTAL LOBE EPILEPSY
     Route: 048
     Dates: end: 20090622
  3. TOPIRAMATE. [Suspect]
     Active Substance: TOPIRAMATE
     Indication: FRONTAL LOBE EPILEPSY
     Route: 048
     Dates: end: 20090622
  4. ZONISAMIDE. [Suspect]
     Active Substance: ZONISAMIDE
     Indication: FRONTAL LOBE EPILEPSY
     Route: 048
     Dates: end: 20090609
  5. SODIUM VALPROATE [Suspect]
     Active Substance: VALPROATE SODIUM
     Indication: FRONTAL LOBE EPILEPSY
     Route: 048

REACTIONS (1)
  - Postictal psychosis [Recovered/Resolved]

NARRATIVE: CASE EVENT DATE: 2008
